FAERS Safety Report 5414864-6 (Version None)
Quarter: 2007Q3

REPORT INFORMATION
  Report Type: 
  Country: None (occurrence: None)
  Receive Date: 20070815
  Receipt Date: 20070807
  Transmission Date: 20080115
  Serious: Yes (Hospitalization, Other)
  Sender: FDA-Public Use
  Company Number: PHBS2007ES12332

PATIENT
  Age: 19 Year
  Sex: Male

DRUGS (5)
  1. CARBAMAZEPINE [Suspect]
     Indication: BIPOLAR DISORDER
     Dosage: 500 MG/DAY
     Route: 065
     Dates: start: 19990913
  2. BIPERIDEN HYDROCHLORIDE TAB [Concomitant]
     Dates: start: 19990913
  3. OLANZAPINE [Concomitant]
  4. CLONAZEPAM [Concomitant]
  5. HALOPERIDOL [Concomitant]

REACTIONS (33)
  - ASPARTATE AMINOTRANSFERASE INCREASED [None]
  - BLOOD ALBUMIN DECREASED [None]
  - BLOOD ALKALINE PHOSPHATASE INCREASED [None]
  - BLOOD LACTATE DEHYDROGENASE INCREASED [None]
  - CHILLS [None]
  - CONJUNCTIVITIS INFECTIVE [None]
  - COUGH [None]
  - DERMATITIS EXFOLIATIVE [None]
  - DISORIENTATION [None]
  - DRUG RASH WITH EOSINOPHILIA AND SYSTEMIC SYMPTOMS [None]
  - EOSINOPHIL COUNT INCREASED [None]
  - FACE OEDEMA [None]
  - GAMMA-GLUTAMYLTRANSFERASE INCREASED [None]
  - GLOBULINS DECREASED [None]
  - HAEMOPTYSIS [None]
  - HEPATOMEGALY [None]
  - LEUKOCYTOSIS [None]
  - LOBAR PNEUMONIA [None]
  - LYMPHADENOPATHY [None]
  - MANIA [None]
  - NEUTROPHILIA [None]
  - OEDEMA PERIPHERAL [None]
  - PROTEIN TOTAL DECREASED [None]
  - PROTHROMBIN TIME PROLONGED [None]
  - PRURITUS [None]
  - PSYCHOMOTOR HYPERACTIVITY [None]
  - PYREXIA [None]
  - RASH ERYTHEMATOUS [None]
  - SKIN EXFOLIATION [None]
  - SKIN FISSURES [None]
  - SKIN TEST POSITIVE [None]
  - TACHYPNOEA [None]
  - WHITE BLOOD CELL COUNT INCREASED [None]
